FAERS Safety Report 12533106 (Version 1)
Quarter: 2016Q3

REPORT INFORMATION
  Report Type: Spontaneous
  Country: US (occurrence: US)
  Receive Date: 20160706
  Receipt Date: 20160706
  Transmission Date: 20161109
  Serious: No
  Sender: FDA-Public Use
  Company Number: US-PURDUE-USA-2015-0126822

PATIENT
  Sex: Female

DRUGS (1)
  1. BUTRANS [Suspect]
     Active Substance: BUPRENORPHINE
     Indication: PRODUCT USED FOR UNKNOWN INDICATION
     Dosage: 15 MCG/HR, WEEKLY
     Route: 062

REACTIONS (9)
  - Depression [Unknown]
  - Insomnia [Unknown]
  - Headache [Unknown]
  - Application site pain [Unknown]
  - Anxiety [Unknown]
  - Drug effect increased [Unknown]
  - Dizziness [Unknown]
  - Nausea [Unknown]
  - Malaise [Unknown]
